FAERS Safety Report 6867637-1 (Version None)
Quarter: 2010Q3

REPORT INFORMATION
  Report Type: 
  Country: None (occurrence: None)
  Receive Date: 20100722
  Receipt Date: 20091014
  Transmission Date: 20110219
  Serious: No
  Sender: FDA-Public Use
  Company Number: US-BAUSCH-2009BL005207

PATIENT
  Age: 48 Year
  Sex: Female

DRUGS (2)
  1. OPCON-A [Suspect]
     Indication: DRY EYE
     Route: 047
     Dates: start: 20091012, end: 20091013
  2. OPCON-A [Suspect]
     Indication: OCULAR HYPERAEMIA
     Route: 047
     Dates: start: 20091012, end: 20091013

REACTIONS (5)
  - INSTILLATION SITE FOREIGN BODY SENSATION [None]
  - INSTILLATION SITE PAIN [None]
  - LACRIMATION INCREASED [None]
  - OCULAR HYPERAEMIA [None]
  - VISION BLURRED [None]
